FAERS Safety Report 24809326 (Version 1)
Quarter: 2025Q1

REPORT INFORMATION
  Report Type: Spontaneous
  Country: CH (occurrence: CH)
  Receive Date: 20250106
  Receipt Date: 20250106
  Transmission Date: 20250409
  Serious: Yes (Hospitalization, Other)
  Sender: ABBVIE
  Company Number: CH-ABBVIE-6069889

PATIENT
  Age: 41 Year
  Sex: Female

DRUGS (14)
  1. VENETOCLAX [Suspect]
     Active Substance: VENETOCLAX
     Indication: Acute myeloid leukaemia
     Route: 048
     Dates: start: 20230818, end: 20230826
  2. DAUNORUBICIN [Concomitant]
     Active Substance: DAUNORUBICIN
     Indication: Acute myeloid leukaemia
     Dates: start: 20230428
  3. DAFALGAN [Concomitant]
     Active Substance: ACETAMINOPHEN
     Indication: Product used for unknown indication
     Route: 048
  4. MITOXANTRONE [Concomitant]
     Active Substance: MITOXANTRONE HYDROCHLORIDE
     Indication: Acute myeloid leukaemia
     Dates: start: 20230629
  5. NOXAFIL [Suspect]
     Active Substance: POSACONAZOLE
     Indication: Product used for unknown indication
     Route: 048
  6. Potassium chloride retard hausmann [Concomitant]
     Indication: Product used for unknown indication
     Route: 048
  7. PANTOZOL [Concomitant]
     Active Substance: PANTOPRAZOLE SODIUM
     Indication: Product used for unknown indication
     Route: 048
  8. LAXIPEG [Concomitant]
     Indication: Product used for unknown indication
     Route: 048
  9. ETOPOSIDE [Concomitant]
     Active Substance: ETOPOSIDE
     Indication: Acute myeloid leukaemia
     Dates: start: 20230629
  10. VALTREX [Concomitant]
     Active Substance: VALACYCLOVIR HYDROCHLORIDE
     Indication: Product used for unknown indication
     Route: 048
  11. CYTARABINE [Concomitant]
     Active Substance: CYTARABINE
     Indication: Acute myeloid leukaemia
     Dates: start: 20230428
  12. AZACITIDINE [Suspect]
     Active Substance: AZACITIDINE
     Indication: Acute myeloid leukaemia
     Route: 058
     Dates: start: 20230818, end: 20231026
  13. MOTILIUM [Concomitant]
     Active Substance: DOMPERIDONE
     Indication: Product used for unknown indication
     Route: 048
  14. Riopan [Concomitant]
     Indication: Product used for unknown indication

REACTIONS (15)
  - Febrile neutropenia [Unknown]
  - Proctitis [Unknown]
  - Tooth infection [Unknown]
  - Staphylococcus test positive [Unknown]
  - Enterobacter infection [Unknown]
  - Pneumonia fungal [Unknown]
  - Enterococcal infection [Unknown]
  - Clostridium difficile infection [Unknown]
  - Colitis [Unknown]
  - Muscle disorder [Unknown]
  - Endometriosis [Unknown]
  - Neutropenia [Not Recovered/Not Resolved]
  - Pyrexia [Unknown]
  - Bone marrow infiltration [Unknown]
  - Pericardial effusion [Unknown]

NARRATIVE: CASE EVENT DATE: 20230101
